FAERS Safety Report 5147977-7 (Version None)
Quarter: 2006Q4

REPORT INFORMATION
  Report Type: 
  Country: None (occurrence: None)
  Receive Date: 20061106
  Receipt Date: 20061023
  Transmission Date: 20070319
  Serious: Yes (Hospitalization)
  Sender: FDA-Public Use
  Company Number: 2006032093

PATIENT
  Age: 61 Year
  Sex: Male
  Weight: 81.1939 kg

DRUGS (6)
  1. SUTENT [Suspect]
     Indication: GASTROINTESTINAL STROMAL TUMOUR
     Dosage: 50 MG (50 MG, FREQUENCY: QD; INTERVAL: QD X 29D) ORAL
     Route: 048
     Dates: start: 20051202, end: 20060310
  2. PLAVIX [Concomitant]
  3. CARTIA XT [Concomitant]
  4. METOPROLOL [Concomitant]
  5. ACETYLSALICYLIC ACID SRT [Concomitant]
  6. NEXIUM [Concomitant]

REACTIONS (11)
  - CEREBROVASCULAR DISORDER [None]
  - GASTRITIS [None]
  - GASTROINTESTINAL STROMAL TUMOUR [None]
  - INTESTINAL DILATATION [None]
  - MALIGNANT NEOPLASM PROGRESSION [None]
  - METASTATIC NEOPLASM [None]
  - MYOCARDIAL INFARCTION [None]
  - OESOPHAGEAL HAEMORRHAGE [None]
  - PLEURAL EFFUSION [None]
  - PULMONARY EMBOLISM [None]
  - TRANSIENT ISCHAEMIC ATTACK [None]
